FAERS Safety Report 14320108 (Version 1)
Quarter: 2017Q4

REPORT INFORMATION
  Report Type: Spontaneous
  Country: AT (occurrence: AT)
  Receive Date: 20171222
  Receipt Date: 20171222
  Transmission Date: 20180321
  Serious: Yes (Hospitalization)
  Sender: FDA-Public Use
  Company Number: AT-TAKEDA-2017TUS027042

PATIENT
  Age: 51 Year
  Sex: Female

DRUGS (10)
  1. LYRICA [Interacting]
     Active Substance: PREGABALIN
     Dosage: 450 MG, QD
     Route: 065
     Dates: end: 20170129
  2. TOPAMAX [Suspect]
     Active Substance: TOPIRAMATE
     Dosage: 50 MG, QD
     Route: 048
     Dates: start: 20170130, end: 20170130
  3. BRINTELLIX [Suspect]
     Active Substance: VORTIOXETINE HYDROBROMIDE
     Indication: PRODUCT USED FOR UNKNOWN INDICATION
     Dosage: 20 MG, QD
     Route: 065
     Dates: end: 20170130
  4. TOPAMAX [Suspect]
     Active Substance: TOPIRAMATE
     Indication: PRODUCT USED FOR UNKNOWN INDICATION
     Dosage: 100 MG, QD
     Route: 048
     Dates: end: 20170119
  5. EFECTIN [Interacting]
     Active Substance: VENLAFAXINE HYDROCHLORIDE
     Dosage: 225 MG, QD
     Route: 065
     Dates: start: 201611, end: 20170110
  6. ANAFRANIL [Interacting]
     Active Substance: CLOMIPRAMINE HYDROCHLORIDE
     Indication: PRODUCT USED FOR UNKNOWN INDICATION
     Dosage: 75 MG, QD
     Route: 065
     Dates: end: 20170112
  7. LYRICA [Interacting]
     Active Substance: PREGABALIN
     Indication: PRODUCT USED FOR UNKNOWN INDICATION
     Dosage: 300 MG, QD
     Route: 065
     Dates: start: 20170130, end: 20170131
  8. BRINTELLIX [Interacting]
     Active Substance: VORTIOXETINE HYDROBROMIDE
     Dosage: 10 MG, QD
     Route: 065
     Dates: start: 20170131, end: 20170131
  9. TOPAMAX [Suspect]
     Active Substance: TOPIRAMATE
     Dosage: 75 MG, QD
     Route: 048
     Dates: start: 20170120, end: 20170129
  10. EFECTIN [Interacting]
     Active Substance: VENLAFAXINE HYDROCHLORIDE
     Indication: PRODUCT USED FOR UNKNOWN INDICATION
     Dosage: 150 MG, QD
     Route: 065
     Dates: start: 20170111, end: 20170130

REACTIONS (3)
  - Drug interaction [Unknown]
  - Delirium [Recovered/Resolved]
  - Urinary tract infection [Recovered/Resolved]

NARRATIVE: CASE EVENT DATE: 20170105
